FAERS Safety Report 4367895-1 (Version None)
Quarter: 2004Q2

REPORT INFORMATION
  Report Type: 
  Country: None (occurrence: None)
  Receive Date: 20040601
  Receipt Date: 20040601
  Transmission Date: 20050107
  Serious: Yes (Hospitalization)
  Sender: FDA-Public Use
  Company Number: None

PATIENT
  Age: 71 Year
  Sex: Female
  Weight: 72 kg

DRUGS (14)
  1. GABAPENTIN [Suspect]
     Indication: HERPES ZOSTER
     Dates: start: 20040426
  2. GABAPENTIN [Suspect]
     Indication: PAIN
     Dates: start: 20040426
  3. OXYCONTIN [Suspect]
     Indication: HERPES ZOSTER
  4. PLACEBO-PER STUDY PROTOCOL TITRATION SCHE [Suspect]
  5. PLACEBO-PER STUDY PROTOCOL TITRATION SCHE [Suspect]
  6. FAMVIR [Suspect]
  7. ACETAMINOPHEN [Suspect]
  8. HYDROCHLOROTHIAZIDE [Concomitant]
  9. CELEXA [Concomitant]
  10. MIRALAX [Concomitant]
  11. MOBIC [Concomitant]
  12. MULTIVIT [Concomitant]
  13. CALCIUM AND VIT C [Concomitant]
  14. PHENERGAN [Concomitant]

REACTIONS (3)
  - DIZZINESS [None]
  - HYPOVOLAEMIA [None]
  - ISCHAEMIA [None]
